FAERS Safety Report 6841342-X (Version None)
Quarter: 2010Q3

REPORT INFORMATION
  Report Type: 
  Country: None (occurrence: None)
  Receive Date: 20100714
  Receipt Date: 20070629
  Transmission Date: 20110219
  Serious: No
  Sender: FDA-Public Use
  Company Number: US-PFIZER INC-2007055739

PATIENT
  Sex: Male
  Weight: 84.1 kg

DRUGS (12)
  1. CHANTIX [Suspect]
     Indication: SMOKING CESSATION THERAPY
     Dates: start: 20070601
  2. PERCOCET [Suspect]
     Indication: BACK PAIN
     Dates: start: 20020101
  3. PERCOCET [Suspect]
     Indication: NECK PAIN
  4. PERCOCET [Suspect]
     Indication: ARTHRALGIA
  5. METHADONE HCL [Suspect]
     Indication: BACK PAIN
     Dates: start: 20020101
  6. METHADONE HCL [Suspect]
     Indication: NECK PAIN
  7. METHADONE HCL [Suspect]
     Indication: ARTHRALGIA
  8. ZANAFLEX [Concomitant]
     Indication: ASTHMA
  9. LEVOSALBUTAMOL [Concomitant]
     Indication: ASTHMA
  10. ALBUTEROL [Concomitant]
     Indication: ASTHMA
  11. MONTELUKAST SODIUM [Concomitant]
     Indication: ASTHMA
  12. PREDNISONE TAB [Concomitant]
     Indication: ASTHMA

REACTIONS (7)
  - ABDOMINAL DISCOMFORT [None]
  - CHEST PAIN [None]
  - DRUG WITHDRAWAL SYNDROME [None]
  - IRRITABILITY [None]
  - NASOPHARYNGITIS [None]
  - SKIN TIGHTNESS [None]
  - TREMOR [None]
